FAERS Safety Report 8183103-8 (Version None)
Quarter: 2012Q1

REPORT INFORMATION
  Report Type: 
  Country: None (occurrence: None)
  Receive Date: 20120126
  Receipt Date: 20111206
  Transmission Date: 20120608
  Serious: Yes (Death)
  Sender: FDA-Public Use
  Company Number: PHEH2011US011002

PATIENT
  Sex: Male

DRUGS (9)
  1. PAXIL [Concomitant]
  2. RANITIDINE HYDROCHLORIDE [Concomitant]
  3. MYLANTA (ALUMINIUM HYDROXIDE GEL, DRIED, MAGNESIUM HYDROXIDE, SIMETICO [Concomitant]
  4. ACETAMINOPHEN [Concomitant]
  5. AFINITOR [Suspect]
     Dosage: 10 MG, DAILY FOR 28 DAYS, ORAL
     Route: 048
  6. HYDROCODIN (DIHYDROCODEINE BITARTRATE) [Concomitant]
  7. XANAX [Concomitant]
  8. MULTIVITAMINS (ASCORBIC ACID, ERGOCALCIFEROL, FOLIC ACID, NICOTINAMIDE [Concomitant]
  9. ATENOLOL [Concomitant]

REACTIONS (2)
  - NEOPLASM MALIGNANT [None]
  - NEOPLASM PROGRESSION [None]
